FAERS Safety Report 17541661 (Version 3)
Quarter: 2020Q4

REPORT INFORMATION
  Report Type: Spontaneous
  Country: US (occurrence: US)
  Receive Date: 20200313
  Receipt Date: 20201104
  Transmission Date: 20210113
  Serious: Yes (Hospitalization)
  Sender: FDA-Public Use
  Company Number: US-BAUSCH-BL-2020-007727

PATIENT
  Age: 93 Year
  Sex: Female

DRUGS (2)
  1. XIFAXAN [Suspect]
     Active Substance: RIFAXIMIN
     Indication: HEPATIC ENCEPHALOPATHY
     Dosage: FOR YEARS
     Route: 048
     Dates: end: 2020
  2. XIFAXAN [Suspect]
     Active Substance: RIFAXIMIN
     Dosage: FOR YEARS
     Route: 048
     Dates: start: 202009

REACTIONS (8)
  - Hip fracture [Unknown]
  - Product use complaint [Unknown]
  - Fall [Unknown]
  - Headache [Unknown]
  - Insurance issue [Unknown]
  - Oedema peripheral [Not Recovered/Not Resolved]
  - Wrong technique in product usage process [Unknown]
  - Therapy interrupted [Unknown]

NARRATIVE: CASE EVENT DATE: 2020
